FAERS Safety Report 5708104-8 (Version None)
Quarter: 2008Q2

REPORT INFORMATION
  Report Type: 
  Country: None (occurrence: None)
  Receive Date: 20080414
  Receipt Date: 20080331
  Transmission Date: 20081010
  Serious: Yes (Hospitalization, Other)
  Sender: FDA-Public Use
  Company Number: S07-ITA-01291-01

PATIENT
  Sex: Male
  Weight: 3.17 kg

DRUGS (9)
  1. ESCITALOPRAM [Suspect]
     Indication: PANIC ATTACK
     Dosage: 20 MG QD TRANSPLACENTAL
     Route: 064
     Dates: start: 20060211, end: 20060621
  2. ESCITALOPRAM [Suspect]
     Indication: POSTPARTUM DEPRESSION
     Dosage: 20 MG QD TRANSPLACENTAL
     Route: 064
     Dates: start: 20060211, end: 20060621
  3. ESCITALOPRAM [Suspect]
     Indication: PANIC ATTACK
     Dosage: 15 MG QD PO
     Route: 048
     Dates: start: 20060621, end: 20060625
  4. ESCITALOPRAM [Suspect]
     Indication: POSTPARTUM DEPRESSION
     Dosage: 15 MG QD PO
     Route: 048
     Dates: start: 20060621, end: 20060625
  5. ESCITALOPRAM [Suspect]
     Indication: PANIC ATTACK
     Dosage: 15 MG QD PO
     Route: 048
     Dates: start: 20060626, end: 20060630
  6. ESCITALOPRAM [Suspect]
     Indication: POSTPARTUM DEPRESSION
     Dosage: 15 MG QD PO
     Route: 048
     Dates: start: 20060626, end: 20060630
  7. ESCITALOPRAM [Suspect]
     Indication: PANIC ATTACK
     Dosage: 5 MG QD PO
     Route: 048
     Dates: start: 20060701, end: 20060705
  8. ESCITALOPRAM [Suspect]
     Indication: POSTPARTUM DEPRESSION
     Dosage: 5 MG QD PO
     Route: 048
     Dates: start: 20060701, end: 20060705
  9. SEDATOL (MATRICARIA RECUTITA) [Concomitant]

REACTIONS (8)
  - ASPARTATE AMINOTRANSFERASE INCREASED [None]
  - CAESAREAN SECTION [None]
  - DRUG EXPOSURE DURING PREGNANCY [None]
  - DRUG TOXICITY [None]
  - INSOMNIA [None]
  - NERVOUSNESS [None]
  - POSTPARTUM DEPRESSION [None]
  - PREGNANCY [None]
